FAERS Safety Report 10391233 (Version 2)
Quarter: 2015Q1

REPORT INFORMATION
  Report Type: Spontaneous
  Country: IT (occurrence: IT)
  Receive Date: 20140818
  Receipt Date: 20150126
  Transmission Date: 20150720
  Serious: Yes (Other)
  Sender: FDA-Public Use
  Company Number: IT-TEVA-502298ISR

PATIENT
  Age: 94 Year
  Sex: Male

DRUGS (1)
  1. LEVOFLOXACINA TEVA 500 MG [Suspect]
     Active Substance: LEVOFLOXACIN
     Indication: URINARY TRACT INFECTION
     Dosage: 500 MILLIGRAM DAILY;
     Route: 048
     Dates: start: 20140801, end: 20140803

REACTIONS (2)
  - Tendon injury [Unknown]
  - Abasia [Unknown]

NARRATIVE: CASE EVENT DATE: 20140801
